FAERS Safety Report 11255344 (Version 1)
Quarter: 2015Q3

REPORT INFORMATION
  Report Type: Spontaneous
  Country: GB (occurrence: GB)
  Receive Date: 20150709
  Receipt Date: 20150709
  Transmission Date: 20151125
  Serious: Yes (Congenital Anomaly)
  Sender: FDA-Public Use
  Company Number: GB-TEVA-576424ACC

PATIENT

DRUGS (4)
  1. METOCLOPRAMIDE. [Suspect]
     Active Substance: METOCLOPRAMIDE
     Dosage: 10 MILLIGRAM DAILY;
     Route: 064
     Dates: start: 20141013
  2. AVOMINE [Suspect]
     Active Substance: PROMETHAZINE TEOCLATE
     Dosage: 25 MILLIGRAM DAILY;
     Route: 064
     Dates: start: 20140916
  3. ACIDEX [Suspect]
     Active Substance: CALCIUM CARBONATE\SODIUM ALGINATE\SODIUM BICARBONATE
     Dosage: 5-10ML DAILY
     Route: 064
     Dates: start: 20140925
  4. CYCLIZINE [Suspect]
     Active Substance: CYCLIZINE
     Dosage: DOSE AND FREQUENCY UNKNOWN
     Route: 064
     Dates: start: 20141013

REACTIONS (7)
  - Foetal exposure during pregnancy [Unknown]
  - Patent ductus arteriosus [Unknown]
  - Foetal growth restriction [Unknown]
  - Premature baby [Unknown]
  - Placental transfusion syndrome [Unknown]
  - Atrial septal defect [Unknown]
  - Jaundice [Unknown]
